FAERS Safety Report 23188679 (Version 2)
Quarter: 2023Q4

REPORT INFORMATION
  Report Type: Spontaneous
  Country: US (occurrence: US)
  Receive Date: 20231115
  Receipt Date: 20231121
  Transmission Date: 20240110
  Serious: No
  Sender: FDA-Public Use
  Company Number: US-PFIZER INC-202300361628

PATIENT
  Age: 63 Year
  Sex: Female

DRUGS (1)
  1. PAXLOVID [Suspect]
     Active Substance: NIRMATRELVIR\RITONAVIR
     Indication: COVID-19 treatment
     Dosage: 3 PILLS IN THE DAY TIME, 3 PILLS AT NIGHT

REACTIONS (5)
  - Therapeutic product effect incomplete [Unknown]
  - Dysgeusia [Unknown]
  - Poor quality product administered [Unknown]
  - Product dispensing error [Unknown]
  - Expired product administered [Unknown]
